FAERS Safety Report 18626477 (Version 1)
Quarter: 2020Q4

REPORT INFORMATION
  Report Type: Spontaneous
  Country: GB (occurrence: GB)
  Receive Date: 20201216
  Receipt Date: 20201216
  Transmission Date: 20210114
  Serious: Yes (Hospitalization, Other)
  Sender: FDA-Public Use
  Company Number: GB-ELI_LILLY_AND_COMPANY-GB202012003231

PATIENT
  Sex: Male

DRUGS (1)
  1. ZYPREXA [Suspect]
     Active Substance: OLANZAPINE
     Indication: PRODUCT USED FOR UNKNOWN INDICATION
     Dosage: UNK, UNKNOWN
     Route: 065
     Dates: start: 201309

REACTIONS (18)
  - Psychotic disorder [Recovered/Resolved]
  - Adverse drug reaction [Unknown]
  - Intentional self-injury [Recovered/Resolved]
  - Alopecia [Not Recovered/Not Resolved]
  - Movement disorder [Not Recovered/Not Resolved]
  - Eye disorder [Not Recovered/Not Resolved]
  - Cognitive disorder [Not Recovered/Not Resolved]
  - Wrong technique in product usage process [Unknown]
  - Suicidal behaviour [Recovered/Resolved]
  - Dyskinesia [Not Recovered/Not Resolved]
  - Headache [Not Recovered/Not Resolved]
  - Hallucination [Recovered/Resolved]
  - Dyspnoea [Not Recovered/Not Resolved]
  - Tooth fracture [Not Recovered/Not Resolved]
  - Hypoacusis [Not Recovered/Not Resolved]
  - Dysphagia [Not Recovered/Not Resolved]
  - Constipation [Not Recovered/Not Resolved]
  - Withdrawal syndrome [Not Recovered/Not Resolved]

NARRATIVE: CASE EVENT DATE: 201312
